FAERS Safety Report 8203501-3 (Version None)
Quarter: 2012Q1

REPORT INFORMATION
  Report Type: 
  Country: None (occurrence: None)
  Receive Date: 20120313
  Receipt Date: 20120306
  Transmission Date: 20120608
  Serious: Yes (Hospitalization)
  Sender: FDA-Public Use
  Company Number: US-BIOGENIDEC-2012BI008291

PATIENT
  Sex: Female

DRUGS (3)
  1. AVONEX [Suspect]
     Indication: MULTIPLE SCLEROSIS
     Route: 030
     Dates: start: 20001031, end: 20030101
  2. AVONEX [Suspect]
     Route: 030
     Dates: start: 20030101
  3. AVONEX [Suspect]
     Route: 030
     Dates: start: 20030101

REACTIONS (8)
  - ARTHRALGIA [None]
  - CYSTITIS ESCHERICHIA [None]
  - DIARRHOEA [None]
  - MYALGIA [None]
  - CYSTITIS [None]
  - NASOPHARYNGITIS [None]
  - MUSCLE ATROPHY [None]
  - PAIN IN EXTREMITY [None]
